FAERS Safety Report 24633048 (Version 2)
Quarter: 2024Q4

REPORT INFORMATION
  Report Type: Spontaneous
  Country: DE (occurrence: DE)
  Receive Date: 20241118
  Receipt Date: 20241119
  Transmission Date: 20250114
  Serious: Yes (Other)
  Sender: GUERBET
  Company Number: DE-GUERBET / GUERBET GMBH-DE-20240053

PATIENT
  Age: 67 Year
  Sex: Female
  Weight: 55 kg

DRUGS (3)
  1. DOTAREM [Suspect]
     Active Substance: GADOTERATE MEGLUMINE
     Indication: Magnetic resonance imaging
     Route: 042
     Dates: start: 20241030, end: 20241030
  2. ramilich 5 mg [Concomitant]
     Indication: Product used for unknown indication
     Dosage: REGULAR INTAKE AS NEEDED, BUT NOT ON THE DAY OF EXAMINATION
  3. HYGROTON [Concomitant]
     Active Substance: CHLORTHALIDONE
     Indication: Product used for unknown indication
     Dosage: REGULAR INTAKE AS NEEDED, BUT NOT ON THE DAY OF EXAMINATION

REACTIONS (5)
  - Eye irritation [Recovered/Resolved]
  - Eye pruritus [Recovered/Resolved]
  - Eye oedema [Recovered/Resolved]
  - Ocular hyperaemia [Recovered/Resolved]
  - Lacrimation increased [Recovered/Resolved]

NARRATIVE: CASE EVENT DATE: 20241030
